FAERS Safety Report 4494618-8 (Version None)
Quarter: 2004Q4

REPORT INFORMATION
  Report Type: 
  Country: None (occurrence: None)
  Receive Date: 20041105
  Receipt Date: 20040923
  Transmission Date: 20050328
  Serious: Yes (Hospitalization, Disabling, Other)
  Sender: FDA-Public Use
  Company Number: US-MERCK-0409USA02055

PATIENT
  Age: 50 Year
  Sex: Female
  Weight: 110 kg

DRUGS (19)
  1. ZOCOR [Suspect]
     Indication: HYPERCHOLESTEROLAEMIA
     Route: 048
     Dates: start: 20031201, end: 20040128
  2. ZOCOR [Suspect]
     Route: 048
     Dates: start: 20030812, end: 20031201
  3. ZOCOR [Suspect]
     Indication: HYPERLIPIDAEMIA
     Route: 048
     Dates: start: 20031201, end: 20040128
  4. ZOCOR [Suspect]
     Route: 048
     Dates: start: 20030812, end: 20031201
  5. NEXIUM [Concomitant]
     Route: 065
  6. ADVAIR [Concomitant]
     Route: 065
  7. ASPIRIN [Concomitant]
     Route: 065
  8. ALBUTEROL [Concomitant]
     Route: 065
  9. ROBAXIN [Concomitant]
     Route: 065
  10. TEMAZEPAM [Concomitant]
     Route: 065
  11. MAXZIDE [Concomitant]
     Route: 065
  12. EFFEXOR XR [Concomitant]
     Route: 065
  13. AVAPRO [Concomitant]
     Route: 065
  14. ALPRAZOLAM [Concomitant]
     Route: 065
  15. METAMUCIL-2 [Concomitant]
     Route: 065
  16. TUMS [Concomitant]
     Route: 065
  17. DENAVIR [Concomitant]
     Route: 065
  18. ZOLOFT [Concomitant]
     Route: 065
  19. SERZONE [Suspect]
     Route: 065
     Dates: end: 20040128

REACTIONS (6)
  - BLOOD CREATININE INCREASED [None]
  - CHEST PAIN [None]
  - DYSPNOEA [None]
  - INFLUENZA LIKE ILLNESS [None]
  - RHABDOMYOLYSIS [None]
  - URINE OUTPUT DECREASED [None]
